APPROVED DRUG PRODUCT: NALTREXONE HYDROCHLORIDE
Active Ingredient: NALTREXONE HYDROCHLORIDE
Strength: 100MG
Dosage Form/Route: TABLET;ORAL
Application: A076264 | Product #003
Applicant: SPECGX LLC
Approved: Mar 22, 2002 | RLD: No | RS: No | Type: RX